FAERS Safety Report 21227007 (Version 3)
Quarter: 2023Q1

REPORT INFORMATION
  Report Type: Report from Study
  Country: JP (occurrence: JP)
  Receive Date: 20220818
  Receipt Date: 20230201
  Transmission Date: 20230417
  Serious: Yes (Other)
  Sender: FDA-Public Use
  Company Number: JP-RECORDATI RARE DISEASE INC.-2022003838

PATIENT
  Age: 0 Year
  Sex: Female
  Weight: 1025 kg

DRUGS (11)
  1. NEOPROFEN [Suspect]
     Active Substance: IBUPROFEN LYSINE
     Indication: Patent ductus arteriosus
     Dosage: 10 MILLIGRAM
     Route: 042
     Dates: start: 20190111, end: 20190111
  2. NEOPROFEN [Suspect]
     Active Substance: IBUPROFEN LYSINE
     Dosage: 5 MILLIGRAM
     Route: 042
     Dates: start: 20190112, end: 20190112
  3. NEOPROFEN [Suspect]
     Active Substance: IBUPROFEN LYSINE
     Dosage: 5 MILLIGRAM
     Route: 042
     Dates: start: 20190113, end: 20190113
  4. OTSUKA CEZ MC [Concomitant]
     Indication: Nutritional supplementation
     Dosage: UNK
     Route: 042
     Dates: start: 20190111, end: 20190113
  5. PLEAMIN P [Concomitant]
     Indication: Nutritional supplementation
     Dosage: UNK
     Route: 042
     Dates: start: 20190111, end: 20190113
  6. DEXTROSE [Concomitant]
     Active Substance: DEXTROSE
     Indication: Nutritional supplementation
     Dosage: UNK
     Route: 042
     Dates: start: 20190111, end: 20190113
  7. CALCIUM GLUCONATE [Concomitant]
     Active Substance: CALCIUM GLUCONATE
     Indication: Nutritional supplementation
     Dosage: UNK
     Route: 042
     Dates: start: 20190111, end: 20190112
  8. MULTAMIN [AMINO ACIDS NOS;VITAMINS NOS] [Concomitant]
     Indication: Nutritional supplementation
     Dosage: UNK
     Route: 042
     Dates: start: 20190111, end: 20190113
  9. HEPARIN SODIUM [Concomitant]
     Active Substance: HEPARIN SODIUM
     Indication: Prophylaxis
     Dosage: UNK
     Route: 042
     Dates: start: 20190111, end: 20190113
  10. DISTILLED WATER [WATER FOR INJECTION] [Concomitant]
     Indication: Nutritional supplementation
     Dosage: UNK
     Route: 042
     Dates: start: 20190111, end: 20190113
  11. SODIUM CHLORIDE [Concomitant]
     Active Substance: SODIUM CHLORIDE
     Indication: Nutritional supplementation
     Dosage: UNK
     Route: 042
     Dates: start: 20190111, end: 20190113

REACTIONS (3)
  - Systemic inflammatory response syndrome [Recovering/Resolving]
  - Hyponatraemia [Recovering/Resolving]
  - Urine output decreased [Recovering/Resolving]

NARRATIVE: CASE EVENT DATE: 20190112
